FAERS Safety Report 9973936 (Version 1)
Quarter: 2014Q1

REPORT INFORMATION
  Report Type: Report from Study
  Country: US (occurrence: US)
  Receive Date: 20140306
  Receipt Date: 20140306
  Transmission Date: 20141002
  Serious: No
  Sender: FDA-Public Use
  Company Number: US-ABBVIE-13P-163-1159508-00

PATIENT
  Age: 56 Year
  Sex: Male

DRUGS (10)
  1. HUMIRA [Suspect]
     Indication: RHEUMATOID ARTHRITIS
     Dates: start: 20130822
  2. BENICAR [Concomitant]
     Indication: HYPERTENSION
  3. METHOTREXATE [Concomitant]
     Indication: RHEUMATOID ARTHRITIS
  4. FOLIC ACID [Concomitant]
     Indication: VITAMIN SUPPLEMENTATION
  5. KLONOPIN [Concomitant]
     Indication: ANXIETY
  6. KLONOPIN [Concomitant]
     Indication: STRESS
  7. PROZAC [Concomitant]
     Indication: ANXIETY
  8. PROZAC [Concomitant]
     Indication: STRESS
  9. PREDNISONE [Concomitant]
     Indication: PRODUCT USED FOR UNKNOWN INDICATION
  10. PREDNISONE [Concomitant]
     Dates: start: 201310

REACTIONS (1)
  - Drug dose omission [Recovered/Resolved]
